FAERS Safety Report 7672364-7 (Version None)
Quarter: 2011Q3

REPORT INFORMATION
  Report Type: 
  Country: None (occurrence: None)
  Receive Date: 20110809
  Receipt Date: 20110801
  Transmission Date: 20111222
  Serious: Yes (Other)
  Sender: FDA-Public Use
  Company Number: IT-BRISTOL-MYERS SQUIBB COMPANY-15937899

PATIENT
  Age: 74 Year
  Sex: Female

DRUGS (5)
  1. CYCLOPHOSPHAMIDE [Suspect]
     Indication: HEPATITIS C VIRUS TEST
  2. RITUXIMAB [Suspect]
     Indication: HEPATITIS C VIRUS TEST
  3. DOXORUBICIN HCL [Suspect]
     Indication: HEPATITIS C VIRUS TEST
  4. PREDNISONE [Suspect]
     Indication: HEPATITIS C VIRUS TEST
  5. VINCRISTINE [Suspect]
     Indication: HEPATITIS C VIRUS TEST

REACTIONS (2)
  - HEPATIC CIRRHOSIS [None]
  - HEPATITIS [None]
